FAERS Safety Report 23824253 (Version 2)
Quarter: 2024Q3

REPORT INFORMATION
  Report Type: Report from Study
  Country: PK (occurrence: PK)
  Receive Date: 20240507
  Receipt Date: 20240824
  Transmission Date: 20241017
  Serious: Yes (Death, Other)
  Sender: ROCHE
  Company Number: PK-ROCHE-3440082

PATIENT
  Age: 54 Year
  Sex: Female

DRUGS (14)
  1. HERCEPTIN [Suspect]
     Active Substance: TRASTUZUMAB
     Indication: Breast cancer metastatic
     Route: 058
     Dates: start: 20220217
  2. HERCEPTIN [Suspect]
     Active Substance: TRASTUZUMAB
     Indication: Breast cancer
     Route: 058
     Dates: start: 20240420
  3. HERCEPTIN [Suspect]
     Active Substance: TRASTUZUMAB
     Route: 058
  4. HERCEPTIN [Suspect]
     Active Substance: TRASTUZUMAB
     Route: 058
  5. HERCEPTIN [Suspect]
     Active Substance: TRASTUZUMAB
     Route: 058
  6. HERCEPTIN [Suspect]
     Active Substance: TRASTUZUMAB
     Route: 058
  7. HERCEPTIN [Suspect]
     Active Substance: TRASTUZUMAB
     Route: 058
  8. HERCEPTIN [Suspect]
     Active Substance: TRASTUZUMAB
     Route: 058
  9. HERCEPTIN [Suspect]
     Active Substance: TRASTUZUMAB
     Route: 058
  10. HERCEPTIN [Suspect]
     Active Substance: TRASTUZUMAB
     Route: 058
  11. HERCEPTIN [Suspect]
     Active Substance: TRASTUZUMAB
     Route: 058
  12. HERCEPTIN [Suspect]
     Active Substance: TRASTUZUMAB
     Route: 058
  13. HERCEPTIN [Suspect]
     Active Substance: TRASTUZUMAB
     Route: 058
  14. HERCEPTIN [Suspect]
     Active Substance: TRASTUZUMAB
     Route: 058

REACTIONS (5)
  - Neoplasm malignant [Unknown]
  - Pulmonary oedema [Unknown]
  - Pleural effusion [Unknown]
  - Atelectasis [Unknown]
  - Death [Fatal]

NARRATIVE: CASE EVENT DATE: 20240416
